FAERS Safety Report 20526607 (Version 2)
Quarter: 2022Q1

REPORT INFORMATION
  Report Type: Spontaneous
  Country: IT (occurrence: IT)
  Receive Date: 20220228
  Receipt Date: 20220311
  Transmission Date: 20220424
  Serious: Yes (Hospitalization)
  Sender: FDA-Public Use
  Company Number: IT-TEVA-2022-IT-2011677

PATIENT
  Age: 50 Year
  Sex: Male

DRUGS (11)
  1. OLMESARTAN [Suspect]
     Active Substance: OLMESARTAN
     Indication: Hypertension
     Route: 065
     Dates: start: 2020
  2. ACETAMINOPHEN [Concomitant]
     Active Substance: ACETAMINOPHEN
     Indication: Pyrexia
     Route: 065
     Dates: start: 2020
  3. LYSINE ACETYLSALICYLATE [Concomitant]
     Active Substance: ASPIRIN DL-LYSINE
     Indication: Pyrexia
     Route: 065
     Dates: start: 2020
  4. FUROSEMIDE [Concomitant]
     Active Substance: FUROSEMIDE
     Indication: Hypertension
     Route: 065
     Dates: start: 2020
  5. ISOSORBIDE DINITRATE [Concomitant]
     Active Substance: ISOSORBIDE DINITRATE
     Indication: Hypertension
     Route: 065
     Dates: start: 2020
  6. BISOPROLOL [Concomitant]
     Active Substance: BISOPROLOL
     Indication: Hypertension
     Route: 065
     Dates: start: 2020
  7. RAMIPRIL [Concomitant]
     Active Substance: RAMIPRIL
     Indication: Hypertension
     Route: 065
     Dates: start: 2020
  8. PREDNISOLONE [Concomitant]
     Active Substance: PREDNISOLONE
     Indication: Immunosuppressant drug therapy
     Dosage: 1.25 MILLIGRAM DAILY;
     Route: 065
  9. Calcium-heparin. [Concomitant]
     Indication: Anticoagulant therapy
     Dosage: 10000 IU (INTERNATIONAL UNIT) DAILY;
     Route: 065
     Dates: start: 2020
  10. Calcium-heparin. [Concomitant]
     Dosage: 15000 IU (INTERNATIONAL UNIT) DAILY; THRICE DAILY
     Route: 065
     Dates: start: 2020
  11. MORPHINE [Concomitant]
     Active Substance: MORPHINE
     Indication: Agitation
     Route: 058
     Dates: start: 2020

REACTIONS (1)
  - Drug hypersensitivity [Unknown]

NARRATIVE: CASE EVENT DATE: 20200101
